FAERS Safety Report 14166406 (Version 1)
Quarter: 2017Q4

REPORT INFORMATION
  Report Type: Spontaneous
  Country: FR (occurrence: FR)
  Receive Date: 20171107
  Receipt Date: 20171107
  Transmission Date: 20180321
  Serious: Yes (Other)
  Sender: FDA-Public Use
  Company Number: FR-TAKEDA-2017TUS022764

PATIENT
  Age: 62 Year
  Sex: Female
  Weight: 69 kg

DRUGS (11)
  1. PROGESTAN [Concomitant]
     Active Substance: PROGESTERONE
     Dosage: UNK
  2. INEXIUM                            /01479302/ [Concomitant]
     Active Substance: ESOMEPRAZOLE MAGNESIUM
     Dosage: UNK
  3. SERESTA [Concomitant]
     Active Substance: OXAZEPAM
     Dosage: UNK
  4. IMODIUM [Concomitant]
     Active Substance: LOPERAMIDE HYDROCHLORIDE
     Dosage: UNK
  5. SMECTA [Concomitant]
     Active Substance: MONTMORILLONITE
     Dosage: UNK
  6. TRAMADOL. [Concomitant]
     Active Substance: TRAMADOL
     Dosage: UNK
  7. MORPHINE [Concomitant]
     Active Substance: MORPHINE
     Dosage: UNK
  8. ESTREVA [Concomitant]
     Active Substance: ESTRADIOL
     Dosage: UNK
  9. SPASFON                            /00934601/ [Concomitant]
     Active Substance: PHLOROGLUCINOL
     Dosage: UNK
  10. ENTYVIO [Suspect]
     Active Substance: VEDOLIZUMAB
     Indication: CROHN^S DISEASE
     Dosage: 300 MG, Q4WEEKS
     Route: 042
     Dates: start: 20160601
  11. NEBIVOLOL. [Concomitant]
     Active Substance: NEBIVOLOL
     Dosage: UNK

REACTIONS (5)
  - Face oedema [Not Recovered/Not Resolved]
  - Paraesthesia [Not Recovered/Not Resolved]
  - Photosensitivity reaction [Not Recovered/Not Resolved]
  - Oedema peripheral [Not Recovered/Not Resolved]
  - Rash pruritic [Not Recovered/Not Resolved]

NARRATIVE: CASE EVENT DATE: 20170201
